FAERS Safety Report 13982145 (Version 1)
Quarter: 2017Q3

REPORT INFORMATION
  Report Type: Spontaneous
  Country: US (occurrence: None)
  Receive Date: 20170916
  Receipt Date: 20170916
  Transmission Date: 20171128
  Serious: No
  Sender: FDA-Public Use
  Company Number: None

PATIENT
  Age: 53 Year
  Sex: Female

DRUGS (3)
  1. FLU VACCINE [Concomitant]
     Active Substance: INFLUENZA VIRUS VACCINE
  2. NUTROPIN AQ NUSPIN 10 [Suspect]
     Active Substance: SOMATROPIN
  3. TDAP [Concomitant]
     Active Substance: TETANUS TOXOID, REDUCED DIPHTHERIA TOXOID AND ACELLULAR PERTUSSIS VACCINE ADSORBED, TDAP

REACTIONS (5)
  - Dizziness [None]
  - Asthenia [None]
  - Pain in extremity [None]
  - Laboratory test abnormal [None]
  - Diarrhoea [None]

NARRATIVE: CASE EVENT DATE: 20170914
